FAERS Safety Report 8923701 (Version 1)
Quarter: 2012Q4

REPORT INFORMATION
  Report Type: Spontaneous
  Country: MX (occurrence: None)
  Receive Date: 20121115
  Receipt Date: 20121115
  Transmission Date: 20130627
  Serious: No
  Sender: FDA-Public Use
  Company Number: 1210MEX014084

PATIENT
  Age: 64 Year

DRUGS (4)
  1. CEDAX [Suspect]
     Indication: URINARY TRACT INFECTION
     Route: 048
  2. CEFTRIAXONE SODIUM [Concomitant]
  3. NITROFURANTOIN (NITROFURANTOIN) [Concomitant]
  4. LEVOFLOXACIN (LEVOFLOXACIN) [Concomitant]

REACTIONS (1)
  - Drug ineffective [None]
